FAERS Safety Report 12969028 (Version 1)
Quarter: 2016Q4

REPORT INFORMATION
  Report Type: Report from Study
  Country: US (occurrence: US)
  Receive Date: 20161123
  Receipt Date: 20161123
  Transmission Date: 20170207
  Serious: Yes (Other)
  Sender: FDA-Public Use
  Company Number: US-MALLINCKRODT-T201605366

PATIENT
  Sex: Female

DRUGS (3)
  1. REPOSITORY CORTICOTROPIN INJECTION [Suspect]
     Active Substance: CORTICOTROPIN
     Indication: POLYMYOSITIS
     Dosage: 80 UNITS /1 ML, 2 TIMES PER WEEK
     Route: 058
     Dates: start: 20160427, end: 201610
  2. REPOSITORY CORTICOTROPIN INJECTION [Suspect]
     Active Substance: CORTICOTROPIN
     Dosage: 60 UNITS, TWICE A WEEK
     Route: 058
     Dates: start: 201610, end: 201610
  3. REPOSITORY CORTICOTROPIN INJECTION [Suspect]
     Active Substance: CORTICOTROPIN
     Dosage: 80 UNITS /1 ML, 2 TIMES PER WEEK
     Route: 058
     Dates: start: 201610

REACTIONS (5)
  - Temporal arteritis [Not Recovered/Not Resolved]
  - Feeling abnormal [Unknown]
  - Dizziness [Unknown]
  - Tinnitus [Not Recovered/Not Resolved]
  - Abdominal discomfort [Recovering/Resolving]

NARRATIVE: CASE EVENT DATE: 2016
